FAERS Safety Report 5387231-1 (Version None)
Quarter: 2007Q3

REPORT INFORMATION
  Report Type: 
  Country: None (occurrence: None)
  Receive Date: 20070716
  Receipt Date: 20070703
  Transmission Date: 20080115
  Serious: Yes (Hospitalization, Other)
  Sender: FDA-Public Use
  Company Number: PHBS2007BR11419

PATIENT
  Age: 77 Year
  Sex: Female
  Weight: 68 kg

DRUGS (2)
  1. GENTEAL (NVO) [Suspect]
     Indication: SCAB
     Dosage: UNK, TIW
  2. ATACAND [Concomitant]
     Indication: HYPERTENSION
     Dosage: 1 TAB/DAY
     Route: 048

REACTIONS (4)
  - ANGIOPLASTY [None]
  - MYOCARDIAL INFARCTION [None]
  - STENT PLACEMENT [None]
  - WEIGHT DECREASED [None]
